FAERS Safety Report 9720372 (Version 1)
Quarter: 2013Q4

REPORT INFORMATION
  Report Type: Spontaneous
  Country: US (occurrence: US)
  Receive Date: 20131129
  Receipt Date: 20131129
  Transmission Date: 20140711
  Serious: Yes (Death, Other)
  Sender: FDA-Public Use
  Company Number: US-JNJFOC-20131116009

PATIENT
  Age: 18 Year
  Sex: Female
  Weight: 55.79 kg

DRUGS (4)
  1. TYLENOL [Suspect]
     Route: 065
  2. TYLENOL [Suspect]
     Indication: PRODUCT USED FOR UNKNOWN INDICATION
     Route: 065
  3. NYQUIL [Suspect]
     Indication: RESTLESSNESS
     Route: 065
  4. NYQUIL [Suspect]
     Indication: SLEEP DISORDER THERAPY
     Route: 065

REACTIONS (2)
  - Diabetic ketoacidosis [Fatal]
  - Toxicity to various agents [Fatal]
